FAERS Safety Report 10022501 (Version 1)
Quarter: 2014Q1

REPORT INFORMATION
  Report Type: Spontaneous
  Country: IT (occurrence: IT)
  Receive Date: 20140319
  Receipt Date: 20140319
  Transmission Date: 20141002
  Serious: Yes (Hospitalization)
  Sender: FDA-Public Use
  Company Number: IT-TEVA-467584ISR

PATIENT
  Age: 41 Year
  Sex: Female
  Weight: 44 kg

DRUGS (7)
  1. FLUOROURACILE TEVA [Suspect]
     Dosage: 544 MILLIGRAM DAILY;
     Route: 042
  2. OXALIPLATINO SUN [Suspect]
     Indication: COLON CANCER
     Dosage: 1490 MILLIGRAM DAILY; CONCENTRATE FOR  SOLUTION FOR INFUSION
     Route: 042
     Dates: start: 20140107, end: 20140227
  3. RANIDIL [Concomitant]
     Dosage: 50 MILLIGRAM DAILY;
     Route: 042
  4. CALCIO GLUCONATO [Concomitant]
     Dosage: 1000 MILLIGRAM DAILY;
     Route: 042
  5. ONDANSETRON HIKMA [Concomitant]
     Dosage: 8 MILLIGRAM DAILY;
     Route: 042
  6. LEVOFOLENE 100 MG [Concomitant]
     Dosage: 136 MILLIGRAM DAILY; POWDER FOR SOLUTION FOR INJECTION
     Route: 042
  7. SOLDESAM [Concomitant]
     Dosage: 8 MILLIGRAM DAILY;

REACTIONS (3)
  - Choking sensation [Recovered/Resolved]
  - Flushing [Recovered/Resolved]
  - Paraesthesia [Recovered/Resolved]
